FAERS Safety Report 7960990-7 (Version None)
Quarter: 2011Q4

REPORT INFORMATION
  Report Type: 
  Country: None (occurrence: None)
  Receive Date: 20111207
  Receipt Date: 20111205
  Transmission Date: 20120403
  Serious: Yes (Other)
  Sender: FDA-Public Use
  Company Number: US-PFIZER INC-2011096347

PATIENT
  Sex: Female
  Weight: 77 kg

DRUGS (2)
  1. ALTACE [Suspect]
     Indication: CARDIOMEGALY
     Dosage: 10 MG, 1X/DAY
     Route: 048
     Dates: start: 19970101
  2. ACETYLSALICYLIC ACID [Concomitant]
     Indication: ISCHAEMIC HEART DISEASE PROPHYLAXIS
     Dosage: 81 MG, 1X/DAY

REACTIONS (3)
  - HYPERTENSION [None]
  - MALAISE [None]
  - DIZZINESS [None]
